FAERS Safety Report 8546415-1 (Version None)
Quarter: 2012Q3

REPORT INFORMATION
  Report Type: 
  Country: None (occurrence: None)
  Receive Date: 20120727
  Receipt Date: 20120106
  Transmission Date: 20120928
  Serious: No
  Sender: FDA-Public Use
  Company Number: US-ASTRAZENECA-2012SE01162

PATIENT
  Age: 36 Year
  Sex: Female
  Weight: 54.9 kg

DRUGS (6)
  1. DEPAKOTE [Concomitant]
  2. SEROQUEL [Suspect]
     Indication: BIPOLAR I DISORDER
     Route: 048
     Dates: start: 20060101
  3. VALIUM [Concomitant]
  4. GEODON [Concomitant]
  5. TEGRETOL [Concomitant]
  6. LITHIUM CARBONATE [Concomitant]

REACTIONS (5)
  - ADVERSE DRUG REACTION [None]
  - PARAESTHESIA [None]
  - DRUG DOSE OMISSION [None]
  - MOOD SWINGS [None]
  - INSOMNIA [None]
